FAERS Safety Report 25215213 (Version 2)
Quarter: 2025Q2

REPORT INFORMATION
  Report Type: Spontaneous
  Country: US (occurrence: US)
  Receive Date: 20250418
  Receipt Date: 20250424
  Transmission Date: 20250717
  Serious: No
  Sender: BIOGEN
  Company Number: US-BIOGEN-2025BI01308029

PATIENT
  Age: 63 Year
  Sex: Female

DRUGS (1)
  1. QALSODY [Suspect]
     Active Substance: TOFERSEN
     Indication: Product used for unknown indication
     Route: 050
     Dates: start: 20250411

REACTIONS (3)
  - Headache [Unknown]
  - Procedural pain [Unknown]
  - Rash [Unknown]

NARRATIVE: CASE EVENT DATE: 20250401
